FAERS Safety Report 4525304-3 (Version None)
Quarter: 2004Q4

REPORT INFORMATION
  Report Type: 
  Country: None (occurrence: None)
  Receive Date: 20041213
  Receipt Date: 20041130
  Transmission Date: 20050328
  Serious: Yes (Other)
  Sender: FDA-Public Use
  Company Number: JP-ROCHE-388504

PATIENT
  Sex: Female

DRUGS (2)
  1. XELODA [Suspect]
     Indication: BREAST CANCER
     Dosage: FOR 3 DAYS FOLLOWED BY ONE WEEK REST
     Route: 048
     Dates: start: 20040203, end: 20040330
  2. HERCEPTIN [Suspect]
     Indication: BREAST CANCER
     Route: 041
     Dates: start: 20031118, end: 20040323

REACTIONS (1)
  - PULMONARY FIBROSIS [None]
